FAERS Safety Report 7540279-0 (Version None)
Quarter: 2011Q2

REPORT INFORMATION
  Report Type: 
  Country: None (occurrence: None)
  Receive Date: 20110610
  Receipt Date: 20110601
  Transmission Date: 20111010
  Serious: Yes (Disabling)
  Sender: FDA-Public Use
  Company Number: PHHY2011US16787

PATIENT
  Sex: Female

DRUGS (2)
  1. GILENYA [Suspect]
     Indication: MULTIPLE SCLEROSIS
     Dosage: 0.5 MG, QD
     Route: 048
     Dates: start: 20110219
  2. GILENYA [Suspect]
     Dosage: 0.5 MG, DAILY
     Route: 048
     Dates: start: 20110225

REACTIONS (6)
  - VITREOUS FLOATERS [None]
  - VOMITING [None]
  - NAUSEA [None]
  - INTRAOCULAR PRESSURE INCREASED [None]
  - MOOD SWINGS [None]
  - PYREXIA [None]
